FAERS Safety Report 22661711 (Version 1)
Quarter: 2023Q2

REPORT INFORMATION
  Report Type: Spontaneous
  Country: US (occurrence: US)
  Receive Date: 20230630
  Receipt Date: 20230630
  Transmission Date: 20230722
  Serious: No
  Sender: FDA-Public Use
  Company Number: US-JAZZ PHARMACEUTICALS-2023-US-005084

PATIENT
  Sex: Female

DRUGS (6)
  1. EPIDIOLEX [Suspect]
     Active Substance: CANNABIDIOL
     Indication: Lennox-Gastaut syndrome
     Dosage: 1.5 MILLILITER
     Route: 048
     Dates: start: 20220330
  2. EPIDIOLEX [Suspect]
     Active Substance: CANNABIDIOL
     Indication: Epilepsy
     Dosage: 2 MILLILITER, BID
  3. EPIDIOLEX [Suspect]
     Active Substance: CANNABIDIOL
     Indication: Seizure
     Dosage: 1.5 MILLILITER, BID
  4. HERBALS\TETRAHYDROCANNABINOL UNSPECIFIED [Suspect]
     Active Substance: HERBALS\TETRAHYDROCANNABINOL UNSPECIFIED
     Indication: Product used for unknown indication
  5. PREDNISONE [Suspect]
     Active Substance: PREDNISONE
     Indication: Sinusitis
     Dosage: UNK
  6. IBUPROFEN [Suspect]
     Active Substance: IBUPROFEN
     Indication: Sinusitis
     Dosage: UNK

REACTIONS (4)
  - Sinusitis [Unknown]
  - Dizziness [Unknown]
  - Drug screen positive [Unknown]
  - Skin lesion [Recovered/Resolved]
